FAERS Safety Report 25400967 (Version 1)
Quarter: 2025Q2

REPORT INFORMATION
  Report Type: Spontaneous
  Country: HU (occurrence: HU)
  Receive Date: 20250605
  Receipt Date: 20250605
  Transmission Date: 20250716
  Serious: Yes (Other)
  Sender: ROCHE
  Company Number: HU-ROCHE-10000302101

PATIENT
  Sex: Male

DRUGS (2)
  1. AVASTIN [Suspect]
     Active Substance: BEVACIZUMAB
     Indication: Glaucoma
     Route: 065
  2. AVASTIN [Suspect]
     Active Substance: BEVACIZUMAB
     Indication: Retinal vein occlusion

REACTIONS (6)
  - Ocular hyperaemia [Unknown]
  - Dry eye [Unknown]
  - Eye pain [Unknown]
  - Vision blurred [Unknown]
  - Drug hypersensitivity [Unknown]
  - Off label use [Unknown]
